FAERS Safety Report 14660367 (Version 1)
Quarter: 2018Q1

REPORT INFORMATION
  Report Type: Spontaneous
  Country: US (occurrence: US)
  Receive Date: 20180317
  Receipt Date: 20180317
  Transmission Date: 20180509
  Serious: Yes (Other)
  Sender: FDA-Public Use
  Company Number: None

PATIENT
  Age: 67 Year
  Sex: Female
  Weight: 54 kg

DRUGS (9)
  1. MYRBETRIQ [Suspect]
     Active Substance: MIRABEGRON
     Indication: INCONTINENCE
     Dosage: ?          QUANTITY:1 TABLET(S);?
     Route: 048
  2. MULTIVITAMIN [Concomitant]
     Active Substance: VITAMINS
  3. LEVOTHYROXIN [Concomitant]
     Active Substance: LEVOTHYROXINE
  4. B50 [Concomitant]
  5. MAGNESIUM MALATE [Concomitant]
  6. VITAMIN D3 [Concomitant]
     Active Substance: CHOLECALCIFEROL
  7. LUTEIN [Concomitant]
     Active Substance: LUTEIN
  8. BILBERRY [Concomitant]
     Active Substance: BILBERRY
  9. NAC [Concomitant]

REACTIONS (2)
  - Renal pain [None]
  - Back pain [None]

NARRATIVE: CASE EVENT DATE: 20180317
